FAERS Safety Report 10269079 (Version 1)
Quarter: 2014Q2

REPORT INFORMATION
  Report Type: Spontaneous
  Country: US (occurrence: US)
  Receive Date: 20140630
  Receipt Date: 20140630
  Transmission Date: 20141212
  Serious: Yes (Hospitalization)
  Sender: FDA-Public Use
  Company Number: US-B.I. PHARMACEUTICALS,INC./RIDGEFIELD-2014-BI-27429BP

PATIENT
  Sex: Female

DRUGS (2)
  1. GILOTRIF [Suspect]
     Indication: NON-SMALL CELL LUNG CANCER
     Dosage: 40 MG
     Route: 048
     Dates: start: 201404, end: 201404
  2. GILOTRIF [Suspect]
     Dosage: 20 MG
     Route: 048

REACTIONS (1)
  - Diarrhoea [Recovered/Resolved]
